FAERS Safety Report 16529883 (Version 1)
Quarter: 2019Q3

REPORT INFORMATION
  Report Type: Spontaneous
  Country: US (occurrence: US)
  Receive Date: 20190704
  Receipt Date: 20190704
  Transmission Date: 20191004
  Serious: No
  Sender: FDA-Public Use
  Company Number: US-UNITED THERAPEUTICS-UNT-2019-011176

PATIENT
  Age: 82 Year
  Sex: Female

DRUGS (2)
  1. TYVASO [Suspect]
     Active Substance: TREPROSTINIL
     Indication: PULMONARY ARTERIAL HYPERTENSION
     Dosage: 18 ?G, QID
     Dates: start: 201906
  2. TYVASO [Suspect]
     Active Substance: TREPROSTINIL
     Dosage: 12 ?G, UNK

REACTIONS (5)
  - Dizziness [Unknown]
  - Headache [Unknown]
  - Chest pain [Unknown]
  - Throat irritation [Unknown]
  - Productive cough [Unknown]

NARRATIVE: CASE EVENT DATE: 201906
